FAERS Safety Report 6064442-3 (Version None)
Quarter: 2009Q1

REPORT INFORMATION
  Report Type: 
  Country: None (occurrence: None)
  Receive Date: 20090203
  Receipt Date: 20090203
  Transmission Date: 20090719
  Serious: Yes (Life-Threatening, Hospitalization)
  Sender: FDA-Public Use
  Company Number: None

PATIENT
  Age: 71 Year
  Sex: Female
  Weight: 85 kg

DRUGS (6)
  1. ORENCIA [Suspect]
     Indication: RHEUMATOID ARTHRITIS
     Dosage: 750 MG Q4WEEKS IV
     Route: 042
     Dates: start: 20080901, end: 20081214
  2. OMEPRAZOLE [Concomitant]
  3. PANCRELIPASE [Concomitant]
  4. ORENCIA [Concomitant]
  5. PREDNISONE [Concomitant]
  6. METHOTREXATE [Concomitant]

REACTIONS (1)
  - PNEUMONIA CRYPTOCOCCAL [None]
